FAERS Safety Report 6150887-X (Version None)
Quarter: 2009Q2

REPORT INFORMATION
  Report Type: 
  Country: None (occurrence: None)
  Receive Date: 20090408
  Receipt Date: 20090330
  Transmission Date: 20091009
  Serious: Yes (Other)
  Sender: FDA-Public Use
  Company Number: CHPA2009US08502

PATIENT
  Age: 64 Year
  Sex: Female

DRUGS (1)
  1. MAALOX UNKNOWN (NCH) (UNKNOWN) UNKNOWN [Suspect]
     Indication: DYSPEPSIA
     Dosage: PRN, ORAL
     Route: 048

REACTIONS (3)
  - HYPERSENSITIVITY [None]
  - LYMPHOMA [None]
  - STEM CELL TRANSPLANT [None]
